FAERS Safety Report 5280644-8 (Version None)
Quarter: 2007Q1

REPORT INFORMATION
  Report Type: 
  Country: None (occurrence: None)
  Receive Date: 20070329
  Receipt Date: 20070317
  Transmission Date: 20070707
  Serious: Yes (Other)
  Sender: FDA-Public Use
  Company Number: US-PFIZER INC-2007021458

PATIENT
  Sex: Female

DRUGS (4)
  1. CHANTIX [Suspect]
     Indication: SMOKING CESSATION THERAPY
     Dates: start: 20070226, end: 20070314
  2. PENICILLIN [Suspect]
     Indication: ORAL SURGERY
     Dosage: FREQ:QID
  3. SIMVASTATIN [Concomitant]
  4. LOTREL [Concomitant]

REACTIONS (2)
  - AGEUSIA [None]
  - TONGUE DISORDER [None]
